FAERS Safety Report 5206823-3 (Version None)
Quarter: 2006Q4

REPORT INFORMATION
  Report Type: 
  Country: None (occurrence: None)
  Receive Date: 20061031
  Receipt Date: 20060628
  Transmission Date: 20070319
  Serious: Yes (Hospitalization)
  Sender: FDA-Public Use
  Company Number: US016856

PATIENT
  Age: 17 Year
  Sex: Female
  Weight: 54.4316 kg

DRUGS (3)
  1. PROVIGIL [Suspect]
     Indication: ATTENTION DEFICIT/HYPERACTIVITY DISORDER
     Dosage: 300 MG QAM; ORAL
     Route: 048
     Dates: start: 20051018, end: 20051220
  2. PROVIGIL [Suspect]
     Indication: ATTENTION DEFICIT/HYPERACTIVITY DISORDER
     Dosage: 50 MG QD; ORAL
     Route: 048
     Dates: start: 20060113, end: 20060113
  3. LAMICTAL [Suspect]
     Dosage: 300 MG DAILY; UNK
     Dates: start: 20051018, end: 20051202

REACTIONS (2)
  - RASH MACULO-PAPULAR [None]
  - STEVENS-JOHNSON SYNDROME [None]
